FAERS Safety Report 4884426-8 (Version None)
Quarter: 2006Q1

REPORT INFORMATION
  Report Type: 
  Country: None (occurrence: None)
  Receive Date: 20060117
  Receipt Date: 20060117
  Transmission Date: 20060701
  Serious: Yes (Other)
  Sender: FDA-Public Use
  Company Number: None

PATIENT
  Age: 44 Year

DRUGS (1)
  1. BOTOX A 100 UNITS (ALLERGAN) [Suspect]
     Indication: BACK PAIN
     Dosage: 200 UNITS DIVIDED INJ
     Dates: start: 20030101

REACTIONS (7)
  - ASTHENIA [None]
  - BACK PAIN [None]
  - GENERAL PHYSICAL HEALTH DETERIORATION [None]
  - HYPOTHYROIDISM [None]
  - MUSCLE SPASMS [None]
  - OFF LABEL USE [None]
  - VERTIGO [None]
